FAERS Safety Report 16761592 (Version 1)
Quarter: 2019Q3

REPORT INFORMATION
  Report Type: Spontaneous
  Country: US (occurrence: US)
  Receive Date: 20190830
  Receipt Date: 20190830
  Transmission Date: 20191005
  Serious: No
  Sender: FDA-Public Use
  Company Number: US-SA-2019SA244117

PATIENT
  Age: 50 Year
  Sex: Female

DRUGS (6)
  1. LASIX [Suspect]
     Active Substance: FUROSEMIDE
     Indication: ABDOMINAL DISTENSION
     Dosage: 40 MG, QD (THEN AS ORAL)
     Route: 048
  2. TERIFLUNOMIDE. [Suspect]
     Active Substance: TERIFLUNOMIDE
     Indication: MULTIPLE SCLEROSIS
     Dosage: UNK
     Dates: start: 20190729
  3. CLONAZEPAM. [Suspect]
     Active Substance: CLONAZEPAM
     Indication: PALPITATIONS
  4. CLONAZEPAM. [Suspect]
     Active Substance: CLONAZEPAM
     Indication: IRRITABILITY
     Dosage: 14 MG
  5. CLONAZEPAM. [Suspect]
     Active Substance: CLONAZEPAM
     Indication: ANXIETY
  6. CLONAZEPAM. [Suspect]
     Active Substance: CLONAZEPAM
     Indication: FEELING ABNORMAL

REACTIONS (9)
  - Blood pressure increased [Unknown]
  - Micturition urgency [Unknown]
  - Condition aggravated [Not Recovered/Not Resolved]
  - Paraesthesia [Not Recovered/Not Resolved]
  - Intervertebral disc protrusion [Not Recovered/Not Resolved]
  - Pollakiuria [Unknown]
  - Abdominal distension [Not Recovered/Not Resolved]
  - Discomfort [Not Recovered/Not Resolved]
  - Hypoaesthesia [Not Recovered/Not Resolved]

NARRATIVE: CASE EVENT DATE: 20190815
